FAERS Safety Report 21242234 (Version 4)
Quarter: 2023Q2

REPORT INFORMATION
  Report Type: Spontaneous
  Country: IT (occurrence: IT)
  Receive Date: 20220823
  Receipt Date: 20230525
  Transmission Date: 20230722
  Serious: Yes (Other)
  Sender: FDA-Public Use
  Company Number: IT-BAYER-2022A096761

PATIENT
  Age: 70 Year
  Sex: Male
  Weight: 81 kg

DRUGS (15)
  1. NIFEDIPINE [Suspect]
     Active Substance: NIFEDIPINE
     Indication: Raynaud^s phenomenon
     Dosage: 30 MILLIGRAM, QD
     Route: 048
  2. NIFEDIPINE [Suspect]
     Active Substance: NIFEDIPINE
     Indication: Systemic scleroderma
     Dosage: 30 MILLIGRAM, QD
     Route: 065
  3. ILOPROST [Suspect]
     Active Substance: ILOPROST
     Indication: Systemic scleroderma
     Dosage: 0.5 NG/KG/MIN Q28D, (6 H PER DAY, EVERY 4 WEEKS)
     Route: 042
     Dates: start: 2011
  4. ILOPROST [Suspect]
     Active Substance: ILOPROST
     Indication: Raynaud^s phenomenon
     Dosage: 1.62 NG/KG/MIN (INCREASED PROGRESSIVELY UP TO THE MAXIMALLY TOLERATED DOSE)
     Route: 042
     Dates: start: 2015
  5. ILOPROST [Suspect]
     Active Substance: ILOPROST
     Dosage: 1.15 NG/KG/MIN. (6 H PER DAY, EVERY 4 WEEKS)
     Route: 042
     Dates: start: 20211103, end: 20211103
  6. ILOPROST [Suspect]
     Active Substance: ILOPROST
     Dosage: 1,3 NG/KG/MIN(6 H PER DAY, EVERY 4 WEEKS)
     Route: 042
     Dates: start: 20221004, end: 20221004
  7. ILOPROST [Suspect]
     Active Substance: ILOPROST
     Dosage: 1.62 NG/KG/MIN. (6 H PER DAY, EVERY 4 WEEKS)
     Route: 042
     Dates: start: 20210908, end: 20210908
  8. AMLODIPINE [Concomitant]
     Active Substance: AMLODIPINE BESYLATE
     Indication: Systemic scleroderma
     Dosage: UNK
     Route: 048
  9. AMLODIPINE [Concomitant]
     Active Substance: AMLODIPINE BESYLATE
     Indication: Raynaud^s phenomenon
     Dosage: 5 MILLIGRAM, QD
     Route: 065
  10. NEBIVOLOL HYDROCHLORIDE [Concomitant]
     Active Substance: NEBIVOLOL HYDROCHLORIDE
     Indication: Hypertension
     Dosage: 2.5 MILLIGRAM
     Route: 048
     Dates: start: 202009
  11. ATORVASTATIN [Concomitant]
     Active Substance: ATORVASTATIN
     Dosage: UNK
     Route: 065
  12. FUROSEMIDE [Concomitant]
     Active Substance: FUROSEMIDE
     Dosage: UNK
     Route: 065
  13. OMEPRAZOLE [Concomitant]
     Active Substance: OMEPRAZOLE
     Dosage: UNK
     Route: 065
  14. ASPIRIN [Concomitant]
     Active Substance: ASPIRIN
     Dosage: UNK
     Route: 065
  15. AMLODIPINE BESYLATE\PERINDOPRIL [Concomitant]
     Active Substance: AMLODIPINE BESYLATE\PERINDOPRIL
     Dosage: UNK
     Route: 065

REACTIONS (5)
  - Raynaud^s phenomenon [Recovered/Resolved]
  - Drug ineffective [Unknown]
  - Paradoxical drug reaction [Recovered/Resolved]
  - Oedema peripheral [Unknown]
  - Headache [Unknown]

NARRATIVE: CASE EVENT DATE: 20210101
